FAERS Safety Report 5334889-9 (Version None)
Quarter: 2007Q2

REPORT INFORMATION
  Report Type: 
  Country: None (occurrence: None)
  Receive Date: 20070525
  Receipt Date: 20070514
  Transmission Date: 20071010
  Serious: Yes (Congenital Anomaly)
  Sender: FDA-Public Use
  Company Number: ES-GILEAD-2007-0012229

PATIENT
  Sex: Female

DRUGS (3)
  1. VIREAD [Suspect]
     Route: 064
  2. COMBIVIR [Suspect]
     Route: 064
  3. KALETRA [Suspect]
     Route: 064

REACTIONS (1)
  - PIERRE ROBIN SYNDROME [None]
